FAERS Safety Report 5994194-4 (Version None)
Quarter: 2008Q4

REPORT INFORMATION
  Report Type: 
  Country: None (occurrence: None)
  Receive Date: 20081212
  Receipt Date: 20080925
  Transmission Date: 20090506
  Serious: No
  Sender: FDA-Public Use
  Company Number: US-ABBOTT-08P-163-0474234-00

PATIENT
  Sex: Female
  Weight: 98.064 kg

DRUGS (18)
  1. HUMIRA [Suspect]
     Indication: RHEUMATOID ARTHRITIS
     Route: 050
     Dates: start: 20080601
  2. LANSOPRAZOLE [Concomitant]
     Indication: GASTROOESOPHAGEAL REFLUX DISEASE
     Route: 048
  3. DATROL [Concomitant]
     Indication: BLADDER DISORDER
     Route: 048
  4. PREGABALIN [Concomitant]
     Indication: INSOMNIA
     Route: 048
  5. CONJUGATED ESTROGENS [Concomitant]
     Indication: HORMONE REPLACEMENT THERAPY
     Route: 048
  6. DYAZIDE [Concomitant]
     Indication: BLOOD PRESSURE
     Route: 048
  7. NARINE [Concomitant]
     Indication: RESPIRATORY DISORDER
     Route: 048
  8. BIMATOPROST [Concomitant]
     Indication: GLAUCOMA
  9. ACETAMINOPHEN W/ PROPOXYPHENE HCL [Concomitant]
     Indication: PAIN
     Route: 048
  10. CYCLOSPORINE [Concomitant]
     Indication: DRY EYE
     Route: 048
  11. NUMOYSYN [Concomitant]
     Indication: DRY MOUTH
     Route: 048
  12. SERETIDE [Concomitant]
     Indication: RESPIRATORY DISORDER
     Route: 045
  13. CALCET [Concomitant]
     Indication: MINERAL SUPPLEMENTATION
     Route: 048
  14. PYRIDOXINE HYDROCHLORIDE [Concomitant]
     Indication: VITAMIN SUPPLEMENTATION
     Route: 048
  15. CYANOCOBALAMIN-TANNIN COMPLEX [Concomitant]
     Indication: VITAMIN SUPPLEMENTATION
     Route: 048
  16. NICOTINAM. W/PYRIDOXI. HCL/RIBOFL./THIAM. HCL [Concomitant]
     Indication: VITAMIN SUPPLEMENTATION
     Route: 048
  17. ASCORBIC ACID [Concomitant]
     Indication: VITAMIN SUPPLEMENTATION
     Route: 048
  18. LINUM USITATISSIMUM SEED OIL [Concomitant]
     Indication: SUPPLEMENTATION THERAPY
     Route: 048

REACTIONS (1)
  - PROCEDURAL COMPLICATION [None]
